FAERS Safety Report 7502299-1 (Version None)
Quarter: 2011Q2

REPORT INFORMATION
  Report Type: 
  Country: None (occurrence: None)
  Receive Date: 20110525
  Receipt Date: 20110510
  Transmission Date: 20111010
  Serious: No
  Sender: FDA-Public Use
  Company Number: US-B.I. PHARMACEUTICALS,INC./RIDGEFIELD-2011-BP-12750BP

PATIENT
  Sex: Male

DRUGS (2)
  1. PRADAXA [Suspect]
     Indication: ATRIAL FIBRILLATION
     Route: 048
     Dates: start: 20110401
  2. ASPIRIN [Concomitant]
     Indication: ATRIAL FIBRILLATION

REACTIONS (4)
  - BLEEDING TIME PROLONGED [None]
  - CONTUSION [None]
  - IMPAIRED HEALING [None]
  - LACERATION [None]
